FAERS Safety Report 25716329 (Version 1)
Quarter: 2025Q3

REPORT INFORMATION
  Report Type: Spontaneous
  Country: VN (occurrence: VN)
  Receive Date: 20250822
  Receipt Date: 20250822
  Transmission Date: 20251021
  Serious: Yes (Other)
  Sender: BAYER HEALTHCARE PHARMACEUTICALS INC.
  Company Number: VN-BAYER-2025A108120

PATIENT
  Age: 17 Year
  Sex: Male
  Weight: 58 kg

DRUGS (1)
  1. CIPROFLOXACIN [Suspect]
     Active Substance: CIPROFLOXACIN
     Indication: Bacterial diarrhoea

REACTIONS (2)
  - Pathogen resistance [None]
  - Drug ineffective [None]
